FAERS Safety Report 7197703-5 (Version None)
Quarter: 2010Q4

REPORT INFORMATION
  Report Type: 
  Country: None (occurrence: None)
  Receive Date: 20101227
  Receipt Date: 20101220
  Transmission Date: 20110411
  Serious: Yes (Other)
  Sender: FDA-Public Use
  Company Number: US-PFIZER INC-2010177369

PATIENT
  Sex: Male
  Weight: 81.633 kg

DRUGS (3)
  1. DEPO-ESTRADIOL [Suspect]
     Indication: OFF LABEL USE
     Dosage: 2 MG, MONTHLY
     Dates: start: 20060101
  2. DEPO-ESTRADIOL [Suspect]
     Indication: TRANS-SEXUALISM
  3. PREMARIN [Concomitant]

REACTIONS (8)
  - ABDOMINAL PAIN UPPER [None]
  - BLOOD CHOLESTEROL INCREASED [None]
  - HEADACHE [None]
  - HYPERTENSION [None]
  - INAPPROPRIATE SCHEDULE OF DRUG ADMINISTRATION [None]
  - OEDEMA PERIPHERAL [None]
  - PAIN [None]
  - VISION BLURRED [None]
